FAERS Safety Report 4337644-1 (Version None)
Quarter: 2004Q2

REPORT INFORMATION
  Report Type: 
  Country: None (occurrence: None)
  Receive Date: 20040408
  Receipt Date: 20040323
  Transmission Date: 20050107
  Serious: Yes (Hospitalization)
  Sender: FDA-Public Use
  Company Number: 2004SE01483

PATIENT
  Age: 40 Year
  Sex: Male

DRUGS (2)
  1. NEXIUM [Suspect]
     Indication: GASTROOESOPHAGEAL REFLUX DISEASE
     Dosage: 20 MG DAILY PO
     Route: 048
     Dates: start: 20030613, end: 20030619
  2. NEXIUM [Suspect]
     Indication: OESOPHAGITIS
     Dosage: 20 MG DAILY PO
     Route: 048
     Dates: start: 20030613, end: 20030619

REACTIONS (6)
  - ANOREXIA [None]
  - CHOLESTASIS [None]
  - DRUG TOXICITY [None]
  - OVERWEIGHT [None]
  - PRURITUS [None]
  - WEIGHT DECREASED [None]
